FAERS Safety Report 6867912-0 (Version None)
Quarter: 2010Q3

REPORT INFORMATION
  Report Type: 
  Country: None (occurrence: None)
  Receive Date: 20100722
  Receipt Date: 20080711
  Transmission Date: 20110219
  Serious: No
  Sender: FDA-Public Use
  Company Number: US-PFIZER INC-2008040271

PATIENT
  Sex: Male
  Weight: 95.454 kg

DRUGS (5)
  1. CHANTIX [Suspect]
     Indication: SMOKING CESSATION THERAPY
  2. EFFEXOR [Concomitant]
  3. SYNTHROID [Concomitant]
  4. XANAX [Concomitant]
  5. GLIPIZIDE [Concomitant]

REACTIONS (4)
  - FATIGUE [None]
  - INSOMNIA [None]
  - OXYGEN SATURATION ABNORMAL [None]
  - SOMNOLENCE [None]
